FAERS Safety Report 15718721 (Version 1)
Quarter: 2018Q4

REPORT INFORMATION
  Report Type: Report from Study
  Country: AR (occurrence: AR)
  Receive Date: 20181213
  Receipt Date: 20181213
  Transmission Date: 20190205
  Serious: Yes (Other)
  Sender: FDA-Public Use
  Company Number: AR-EMD SERONO-E2B_90042113

PATIENT
  Age: 39 Year
  Sex: Female

DRUGS (1)
  1. REBIF [Suspect]
     Active Substance: INTERFERON BETA-1A
     Indication: MULTIPLE SCLEROSIS
     Route: 058
     Dates: start: 20040528, end: 201805

REACTIONS (2)
  - Maternal exposure during pregnancy [Unknown]
  - Complication of pregnancy [Unknown]

NARRATIVE: CASE EVENT DATE: 201804
